FAERS Safety Report 10469057 (Version 2)
Quarter: 2014Q4

REPORT INFORMATION
  Report Type: Spontaneous
  Country: US (occurrence: US)
  Receive Date: 20140923
  Receipt Date: 20141009
  Transmission Date: 20150528
  Serious: Yes (Life-Threatening, Hospitalization, Other)
  Sender: FDA-Public Use
  Company Number: US-UNITED THERAPEUTICS-UNT-2014-007617

PATIENT
  Age: 51 Year
  Sex: Male
  Weight: 79.82 kg

DRUGS (11)
  1. REMODULIN [Suspect]
     Active Substance: TREPROSTINIL
     Indication: COR PULMONALE CHRONIC
     Dosage: 0.06575 ?G/KG, CONTINUING
     Route: 041
     Dates: start: 20131002, end: 20140829
  2. CELLCEPT [Concomitant]
     Active Substance: MYCOPHENOLATE MOFETIL\MYCOPHENOLATE MOFETIL HYDROCHLORIDE
     Indication: RIGHT VENTRICULAR FAILURE
  3. LASIX [Concomitant]
     Active Substance: FUROSEMIDE
     Indication: PRODUCT USED FOR UNKNOWN INDICATION
  4. AMBRISENTAN [Concomitant]
     Active Substance: AMBRISENTAN
     Indication: PRODUCT USED FOR UNKNOWN INDICATION
  5. GABAPENTIN. [Concomitant]
     Active Substance: GABAPENTIN
     Indication: PRODUCT USED FOR UNKNOWN INDICATION
  6. OXYGEN. [Concomitant]
     Active Substance: OXYGEN
     Indication: SYSTEMIC SCLEROSIS
     Dosage: 6 LITERS NASAL CANNULA
  7. ADCIRCA [Concomitant]
     Active Substance: TADALAFIL
     Indication: PRODUCT USED FOR UNKNOWN INDICATION
  8. CELLCEPT [Concomitant]
     Active Substance: MYCOPHENOLATE MOFETIL\MYCOPHENOLATE MOFETIL HYDROCHLORIDE
     Indication: PULMONARY ARTERIAL HYPERTENSION
  9. REMODULIN [Suspect]
     Active Substance: TREPROSTINIL
     Indication: PULMONARY ARTERIAL HYPERTENSION
     Dosage: 0.048 ?G/KG, CONTINUING
     Dates: start: 2014
  10. REMODULIN [Suspect]
     Active Substance: TREPROSTINIL
     Indication: RIGHT VENTRICULAR FAILURE
  11. OXYGEN. [Concomitant]
     Active Substance: OXYGEN
     Indication: INTERSTITIAL LUNG DISEASE

REACTIONS (17)
  - Diarrhoea [Unknown]
  - Hypophosphataemia [Unknown]
  - Acute kidney injury [Unknown]
  - Hypomagnesaemia [Unknown]
  - Pericardial effusion [Unknown]
  - Hypotension [Unknown]
  - Bacterial infection [Unknown]
  - Oropharyngeal pain [Unknown]
  - Neuropathy peripheral [Unknown]
  - Hypokalaemia [Recovered/Resolved]
  - Metabolic acidosis [Unknown]
  - Pleural effusion [Unknown]
  - Hypocalcaemia [Unknown]
  - Pyrexia [Unknown]
  - Cough [Unknown]
  - Dyspnoea [Unknown]
  - Vitamin D deficiency [Unknown]

NARRATIVE: CASE EVENT DATE: 2014
